FAERS Safety Report 25483190 (Version 3)
Quarter: 2025Q4

REPORT INFORMATION
  Report Type: Spontaneous
  Country: CA (occurrence: CA)
  Receive Date: 20250626
  Receipt Date: 20251027
  Transmission Date: 20260117
  Serious: Yes (Life-Threatening, Hospitalization, Disabling, Other)
  Sender: BRISTOL-MYERS SQUIBB COMPANY
  Company Number: CA-BRISTOL-MYERS SQUIBB COMPANY-2025-089371

PATIENT
  Age: 44 Year
  Sex: Female
  Weight: 97 kg

DRUGS (369)
  1. ORENCIA [Suspect]
     Active Substance: ABATACEPT
     Indication: Rheumatoid arthritis
     Route: 058
  2. ORENCIA [Suspect]
     Active Substance: ABATACEPT
  3. ORENCIA [Suspect]
     Active Substance: ABATACEPT
     Route: 042
  4. TRIAMCINOLONE ACETONIDE [Suspect]
     Active Substance: TRIAMCINOLONE ACETONIDE
     Indication: Rheumatoid arthritis
     Route: 013
  5. ORENCIA [Suspect]
     Active Substance: ABATACEPT
     Indication: Rheumatoid arthritis
     Route: 042
  6. ORENCIA [Suspect]
     Active Substance: ABATACEPT
     Indication: Rheumatoid arthritis
  7. PIROXICAM [Concomitant]
     Active Substance: PIROXICAM
     Indication: Product used for unknown indication
  8. LISINOPRIL [Concomitant]
     Active Substance: LISINOPRIL
     Indication: Product used for unknown indication
     Route: 048
  9. IBUPROFEN [Concomitant]
     Active Substance: IBUPROFEN
     Indication: Product used for unknown indication
  10. ATIVAN [Concomitant]
     Active Substance: LORAZEPAM
     Indication: Rheumatoid arthritis
  11. SULFASALAZINE [Concomitant]
     Active Substance: SULFASALAZINE
     Indication: Rheumatoid arthritis
     Route: 048
  12. SULFASALAZINE [Concomitant]
     Active Substance: SULFASALAZINE
     Route: 048
  13. SULFASALAZINE [Concomitant]
     Active Substance: SULFASALAZINE
     Route: 048
  14. SULFASALAZINE [Concomitant]
     Active Substance: SULFASALAZINE
  15. SULFASALAZINE [Concomitant]
     Active Substance: SULFASALAZINE
     Route: 048
  16. SULFASALAZINE [Concomitant]
     Active Substance: SULFASALAZINE
     Route: 048
  17. SULFASALAZINE [Concomitant]
     Active Substance: SULFASALAZINE
  18. RITUXIMAB [Concomitant]
     Active Substance: RITUXIMAB
     Indication: Rheumatoid arthritis
     Route: 042
  19. RITUXIMAB [Concomitant]
     Active Substance: RITUXIMAB
     Route: 058
  20. RITUXIMAB [Concomitant]
     Active Substance: RITUXIMAB
     Route: 041
  21. REMICADE [Concomitant]
     Active Substance: INFLIXIMAB
     Indication: Rheumatoid arthritis
     Route: 042
  22. REMICADE [Concomitant]
     Active Substance: INFLIXIMAB
  23. CETIRIZINE HYDROCHLORIDE\PSEUDOEPHEDRINE HYDROCHLORIDE [Concomitant]
     Active Substance: CETIRIZINE HYDROCHLORIDE\PSEUDOEPHEDRINE HYDROCHLORIDE
     Indication: Rheumatoid arthritis
  24. CETIRIZINE HYDROCHLORIDE\PSEUDOEPHEDRINE HYDROCHLORIDE [Concomitant]
     Active Substance: CETIRIZINE HYDROCHLORIDE\PSEUDOEPHEDRINE HYDROCHLORIDE
     Route: 048
  25. CETIRIZINE HYDROCHLORIDE\PSEUDOEPHEDRINE HYDROCHLORIDE [Concomitant]
     Active Substance: CETIRIZINE HYDROCHLORIDE\PSEUDOEPHEDRINE HYDROCHLORIDE
  26. CETIRIZINE HYDROCHLORIDE\PSEUDOEPHEDRINE HYDROCHLORIDE [Concomitant]
     Active Substance: CETIRIZINE HYDROCHLORIDE\PSEUDOEPHEDRINE HYDROCHLORIDE
     Route: 048
  27. CETIRIZINE HYDROCHLORIDE [Concomitant]
     Active Substance: CETIRIZINE HYDROCHLORIDE
     Indication: Product used for unknown indication
     Route: 048
  28. PSEUDOEPHEDRINE HYDROCHLORIDE AND TRIPROLIDINE HYDROCHLORIDE [Concomitant]
     Active Substance: PSEUDOEPHEDRINE HYDROCHLORIDE\TRIPROLIDINE HYDROCHLORIDE
     Indication: Rheumatoid arthritis
  29. PSEUDOEPHEDRINE HYDROCHLORIDE AND TRIPROLIDINE HYDROCHLORIDE [Concomitant]
     Active Substance: PSEUDOEPHEDRINE HYDROCHLORIDE\TRIPROLIDINE HYDROCHLORIDE
  30. PSEUDOEPHEDRINE HYDROCHLORIDE AND TRIPROLIDINE HYDROCHLORIDE [Concomitant]
     Active Substance: PSEUDOEPHEDRINE HYDROCHLORIDE\TRIPROLIDINE HYDROCHLORIDE
  31. PSEUDOEPHEDRINE [Concomitant]
     Active Substance: PSEUDOEPHEDRINE
     Indication: Product used for unknown indication
  32. PREDNISONE [Concomitant]
     Active Substance: PREDNISONE
     Indication: Rheumatoid arthritis
  33. PREDNISONE [Concomitant]
     Active Substance: PREDNISONE
     Indication: Psoriatic arthropathy
     Route: 048
  34. PREDNISONE [Concomitant]
     Active Substance: PREDNISONE
     Indication: Condition aggravated
     Route: 048
  35. PREDNISONE [Concomitant]
     Active Substance: PREDNISONE
  36. PREDNISONE [Concomitant]
     Active Substance: PREDNISONE
     Route: 048
  37. PREDNISONE [Concomitant]
     Active Substance: PREDNISONE
     Route: 048
  38. PREDNISONE [Concomitant]
     Active Substance: PREDNISONE
  39. PHTHALYLSULFATHIAZOLE [Concomitant]
     Active Substance: PHTHALYLSULFATHIAZOLE
     Indication: Rheumatoid arthritis
  40. PHTHALYLSULFATHIAZOLE [Concomitant]
     Active Substance: PHTHALYLSULFATHIAZOLE
     Route: 042
  41. PHTHALYLSULFATHIAZOLE [Concomitant]
     Active Substance: PHTHALYLSULFATHIAZOLE
     Route: 048
  42. PHTHALYLSULFATHIAZOLE [Concomitant]
     Active Substance: PHTHALYLSULFATHIAZOLE
     Route: 048
  43. PHTHALYLSULFATHIAZOLE [Concomitant]
     Active Substance: PHTHALYLSULFATHIAZOLE
  44. PHTHALYLSULFATHIAZOLE [Concomitant]
     Active Substance: PHTHALYLSULFATHIAZOLE
  45. PHTHALYLSULFATHIAZOLE [Concomitant]
     Active Substance: PHTHALYLSULFATHIAZOLE
     Route: 048
  46. PHTHALYLSULFATHIAZOLE [Concomitant]
     Active Substance: PHTHALYLSULFATHIAZOLE
     Route: 016
  47. PHTHALYLSULFATHIAZOLE [Concomitant]
     Active Substance: PHTHALYLSULFATHIAZOLE
     Route: 048
  48. PERIOGARD [Concomitant]
     Active Substance: CHLORHEXIDINE GLUCONATE
     Indication: Product used for unknown indication
     Route: 002
  49. PERIOGARD [Concomitant]
     Active Substance: CHLORHEXIDINE GLUCONATE
     Route: 016
  50. PERIOGARD [Concomitant]
     Active Substance: CHLORHEXIDINE GLUCONATE
     Route: 048
  51. OXYCODONE TEREPHTHALATE [Concomitant]
     Active Substance: OXYCODONE TEREPHTHALATE
     Indication: Product used for unknown indication
  52. OXYCODONE TEREPHTHALATE [Concomitant]
     Active Substance: OXYCODONE TEREPHTHALATE
     Route: 016
  53. OTEZLA [Concomitant]
     Active Substance: APREMILAST
     Indication: Product used for unknown indication
     Route: 048
  54. OTEZLA [Concomitant]
     Active Substance: APREMILAST
     Route: 048
  55. NEOMYCIN [Concomitant]
     Active Substance: NEOMYCIN
     Indication: Product used for unknown indication
  56. NAPROXEN SODIUM [Concomitant]
     Active Substance: NAPROXEN SODIUM
     Indication: Rheumatoid arthritis
  57. NAPROXEN SODIUM [Concomitant]
     Active Substance: NAPROXEN SODIUM
  58. NAPROXEN SODIUM [Concomitant]
     Active Substance: NAPROXEN SODIUM
  59. METHOTREXATE [Concomitant]
     Active Substance: METHOTREXATE
     Indication: Rheumatoid arthritis
     Route: 048
  60. METHOTREXATE [Concomitant]
     Active Substance: METHOTREXATE
     Route: 058
  61. METHOTREXATE [Concomitant]
     Active Substance: METHOTREXATE
  62. METHOTREXATE [Concomitant]
     Active Substance: METHOTREXATE
     Route: 058
  63. METHOTREXATE [Concomitant]
     Active Substance: METHOTREXATE
     Route: 013
  64. METHOTREXATE [Concomitant]
     Active Substance: METHOTREXATE
     Route: 037
  65. METHOTREXATE [Concomitant]
     Active Substance: METHOTREXATE
     Route: 048
  66. METHOTREXATE [Concomitant]
     Active Substance: METHOTREXATE
     Route: 048
  67. METHOTREXATE [Concomitant]
     Active Substance: METHOTREXATE
     Route: 058
  68. METHOTREXATE [Concomitant]
     Active Substance: METHOTREXATE
     Route: 048
  69. METHOTREXATE [Concomitant]
     Active Substance: METHOTREXATE
  70. METHOTREXATE [Concomitant]
     Active Substance: METHOTREXATE
     Route: 048
  71. METHOTREXATE [Concomitant]
     Active Substance: METHOTREXATE
     Route: 048
  72. METHOTREXATE [Concomitant]
     Active Substance: METHOTREXATE
     Route: 048
  73. METHOTREXATE [Concomitant]
     Active Substance: METHOTREXATE
     Route: 058
  74. METHOTREXATE [Concomitant]
     Active Substance: METHOTREXATE
  75. LYRICA [Concomitant]
     Active Substance: PREGABALIN
     Indication: Product used for unknown indication
  76. LEFLUNOMIDE [Concomitant]
     Active Substance: LEFLUNOMIDE
     Indication: Rheumatoid arthritis
     Route: 048
  77. LEFLUNOMIDE [Concomitant]
     Active Substance: LEFLUNOMIDE
  78. LEFLUNOMIDE [Concomitant]
     Active Substance: LEFLUNOMIDE
     Route: 048
  79. ISOPROPYL ALCOHOL [Concomitant]
     Active Substance: ISOPROPYL ALCOHOL
     Indication: Product used for unknown indication
  80. INFLIXIMAB [Concomitant]
     Active Substance: INFLIXIMAB
     Indication: Rheumatoid arthritis
     Route: 042
  81. INFLIXIMAB [Concomitant]
     Active Substance: INFLIXIMAB
     Route: 042
  82. HYDROXYCHLOROQUINE SULFATE [Concomitant]
     Active Substance: HYDROXYCHLOROQUINE SULFATE
     Indication: Systemic lupus erythematosus
     Route: 058
  83. HYDROXYCHLOROQUINE SULFATE [Concomitant]
     Active Substance: HYDROXYCHLOROQUINE SULFATE
     Indication: Rheumatoid arthritis
     Route: 048
  84. HYDROXYCHLOROQUINE SULFATE [Concomitant]
     Active Substance: HYDROXYCHLOROQUINE SULFATE
  85. HYDROXYCHLOROQUINE SULFATE [Concomitant]
     Active Substance: HYDROXYCHLOROQUINE SULFATE
     Route: 048
  86. HYDROXYCHLOROQUINE [Concomitant]
     Active Substance: HYDROXYCHLOROQUINE
     Indication: Rheumatoid arthritis
  87. HYDROCORTISONE SODIUM SUCCINATE [Concomitant]
     Active Substance: HYDROCORTISONE SODIUM SUCCINATE
     Indication: Rheumatoid arthritis
  88. HYDROCORTISONE SODIUM SUCCINATE [Concomitant]
     Active Substance: HYDROCORTISONE SODIUM SUCCINATE
     Route: 048
  89. HYDROCORTISONE BUTYRATE [Concomitant]
     Active Substance: HYDROCORTISONE BUTYRATE
     Indication: Rheumatoid arthritis
     Route: 058
  90. HYDROCORTISONE [Concomitant]
     Active Substance: HYDROCORTISONE
     Indication: Rheumatoid arthritis
     Route: 003
  91. HYDROCORTISONE [Concomitant]
     Active Substance: HYDROCORTISONE
     Route: 048
  92. HYDROCORTISONE [Concomitant]
     Active Substance: HYDROCORTISONE
     Route: 058
  93. HYDROCORTISONE [Concomitant]
     Active Substance: HYDROCORTISONE
  94. HYDROCORTISONE [Concomitant]
     Active Substance: HYDROCORTISONE
  95. HUMIRA [Concomitant]
     Active Substance: ADALIMUMAB
     Indication: Rheumatoid arthritis
     Route: 058
  96. HUMIRA [Concomitant]
     Active Substance: ADALIMUMAB
     Indication: Psoriatic arthropathy
     Route: 058
  97. HUMIRA [Concomitant]
     Active Substance: ADALIMUMAB
     Route: 058
  98. HUMIRA [Concomitant]
     Active Substance: ADALIMUMAB
  99. HUMIRA [Concomitant]
     Active Substance: ADALIMUMAB
     Route: 058
  100. GOLIMUMAB [Concomitant]
     Active Substance: GOLIMUMAB
     Indication: Rheumatoid arthritis
  101. GOLIMUMAB [Concomitant]
     Active Substance: GOLIMUMAB
     Route: 058
  102. GOLIMUMAB [Concomitant]
     Active Substance: GOLIMUMAB
     Route: 042
  103. GOLIMUMAB [Concomitant]
     Active Substance: GOLIMUMAB
     Route: 052
  104. FOSAMAX [Concomitant]
     Active Substance: ALENDRONATE SODIUM
     Indication: Rheumatoid arthritis
     Route: 048
  105. FOSAMAX [Concomitant]
     Active Substance: ALENDRONATE SODIUM
  106. FOLIC ACID [Concomitant]
     Active Substance: FOLIC ACID
     Indication: Rheumatoid arthritis
     Route: 048
  107. FOLIC ACID [Concomitant]
     Active Substance: FOLIC ACID
  108. FOLIC ACID [Concomitant]
     Active Substance: FOLIC ACID
     Route: 058
  109. FOLIC ACID [Concomitant]
     Active Substance: FOLIC ACID
  110. FOLIC ACID [Concomitant]
     Active Substance: FOLIC ACID
     Route: 058
  111. FOLIC ACID [Concomitant]
     Active Substance: FOLIC ACID
     Route: 048
  112. FOLIC ACID [Concomitant]
     Active Substance: FOLIC ACID
  113. FOLIC ACID [Concomitant]
     Active Substance: FOLIC ACID
     Route: 048
  114. FOLIC ACID [Concomitant]
     Active Substance: FOLIC ACID
     Route: 058
  115. FOLIC ACID [Concomitant]
     Active Substance: FOLIC ACID
     Route: 048
  116. FOLIC ACID [Concomitant]
     Active Substance: FOLIC ACID
  117. FOLIC ACID [Concomitant]
     Active Substance: FOLIC ACID
  118. FOLIC ACID [Concomitant]
     Active Substance: FOLIC ACID
     Route: 058
  119. FOLIC ACID [Concomitant]
     Active Substance: FOLIC ACID
  120. FOLIC ACID [Concomitant]
     Active Substance: FOLIC ACID
  121. FOLIC ACID [Concomitant]
     Active Substance: FOLIC ACID
  122. FOLIC ACID [Concomitant]
     Active Substance: FOLIC ACID
     Route: 048
  123. FOLIC ACID [Concomitant]
     Active Substance: FOLIC ACID
  124. FOLIC ACID [Concomitant]
     Active Substance: FOLIC ACID
  125. FLUMETHASONE PIVALATE [Concomitant]
     Active Substance: FLUMETHASONE PIVALATE
     Indication: Rheumatoid arthritis
     Route: 058
  126. ENBREL [Concomitant]
     Active Substance: ETANERCEPT
     Indication: Rheumatoid arthritis
     Route: 058
  127. ENBREL [Concomitant]
     Active Substance: ETANERCEPT
     Indication: Psoriatic arthropathy
     Route: 058
  128. ENBREL [Concomitant]
     Active Substance: ETANERCEPT
  129. ENBREL [Concomitant]
     Active Substance: ETANERCEPT
  130. ENBREL [Concomitant]
     Active Substance: ETANERCEPT
     Route: 058
  131. ENBREL [Concomitant]
     Active Substance: ETANERCEPT
     Route: 058
  132. ENBREL [Concomitant]
     Active Substance: ETANERCEPT
     Route: 058
  133. ENBREL [Concomitant]
     Active Substance: ETANERCEPT
     Route: 058
  134. ENBREL [Concomitant]
     Active Substance: ETANERCEPT
  135. ENBREL [Concomitant]
     Active Substance: ETANERCEPT
     Route: 048
  136. ENBREL [Concomitant]
     Active Substance: ETANERCEPT
     Route: 058
  137. DOXYCYCLINE HYCLATE [Concomitant]
     Active Substance: DOXYCYCLINE HYCLATE
     Indication: Rheumatoid arthritis
  138. DOXYCYCLINE HYCLATE [Concomitant]
     Active Substance: DOXYCYCLINE HYCLATE
  139. DOXYCYCLINE HYCLATE [Concomitant]
     Active Substance: DOXYCYCLINE HYCLATE
     Route: 005
  140. DOXYCYCLINE HYCLATE [Concomitant]
     Active Substance: DOXYCYCLINE HYCLATE
     Route: 058
  141. DICLOFENAC SODIUM [Concomitant]
     Active Substance: DICLOFENAC SODIUM
     Indication: Rheumatoid arthritis
     Route: 047
  142. DICLOFENAC SODIUM [Concomitant]
     Active Substance: DICLOFENAC SODIUM
     Indication: Osteoarthritis
     Route: 048
  143. DICLOFENAC SODIUM [Concomitant]
     Active Substance: DICLOFENAC SODIUM
     Indication: Inflammation
     Route: 058
  144. DICLOFENAC SODIUM [Concomitant]
     Active Substance: DICLOFENAC SODIUM
     Route: 048
  145. DICLOFENAC SODIUM [Concomitant]
     Active Substance: DICLOFENAC SODIUM
     Route: 047
  146. DICLOFENAC SODIUM [Concomitant]
     Active Substance: DICLOFENAC SODIUM
  147. DICLOFENAC SODIUM [Concomitant]
     Active Substance: DICLOFENAC SODIUM
     Route: 058
  148. DICLOFENAC SODIUM [Concomitant]
     Active Substance: DICLOFENAC SODIUM
     Route: 058
  149. DICLOFENAC SODIUM [Concomitant]
     Active Substance: DICLOFENAC SODIUM
  150. DICLOFENAC SODIUM [Concomitant]
     Active Substance: DICLOFENAC SODIUM
  151. DICLOFENAC SODIUM [Concomitant]
     Active Substance: DICLOFENAC SODIUM
     Route: 058
  152. DICLOFENAC SODIUM [Concomitant]
     Active Substance: DICLOFENAC SODIUM
  153. DICLOFENAC POTASSIUM [Concomitant]
     Active Substance: DICLOFENAC POTASSIUM
     Indication: Rheumatoid arthritis
  154. DICLOFENAC POTASSIUM [Concomitant]
     Active Substance: DICLOFENAC POTASSIUM
  155. DICLOFENAC POTASSIUM [Concomitant]
     Active Substance: DICLOFENAC POTASSIUM
     Route: 048
  156. DICLOFENAC POTASSIUM [Concomitant]
     Active Substance: DICLOFENAC POTASSIUM
     Route: 048
  157. DICLOFENAC DIETHYLAMINE [Concomitant]
     Active Substance: DICLOFENAC DIETHYLAMINE
     Indication: Product used for unknown indication
  158. DICLOFENAC [Concomitant]
     Active Substance: DICLOFENAC
     Indication: Product used for unknown indication
     Route: 058
  159. DICLOFENAC [Concomitant]
     Active Substance: DICLOFENAC
     Route: 048
  160. DICLOFENAC [Concomitant]
     Active Substance: DICLOFENAC
     Route: 047
  161. DICLOFENAC [Concomitant]
     Active Substance: DICLOFENAC
     Route: 058
  162. DICLOFENAC [Concomitant]
     Active Substance: DICLOFENAC
  163. DICLOFENAC [Concomitant]
     Active Substance: DICLOFENAC
  164. DESOXIMETASONE [Concomitant]
     Active Substance: DESOXIMETASONE
     Indication: Rheumatoid arthritis
     Route: 003
  165. DESOXIMETASONE [Concomitant]
     Active Substance: DESOXIMETASONE
     Route: 048
  166. DESOXIMETASONE [Concomitant]
     Active Substance: DESOXIMETASONE
     Route: 058
  167. DESOXIMETASONE [Concomitant]
     Active Substance: DESOXIMETASONE
  168. DESOXIMETASONE [Concomitant]
     Active Substance: DESOXIMETASONE
     Route: 042
  169. DESOXIMETASONE [Concomitant]
     Active Substance: DESOXIMETASONE
  170. DESOXIMETASONE [Concomitant]
     Active Substance: DESOXIMETASONE
     Route: 048
  171. DESOXIMETASONE [Concomitant]
     Active Substance: DESOXIMETASONE
     Route: 058
  172. DESOXIMETASONE [Concomitant]
     Active Substance: DESOXIMETASONE
     Route: 048
  173. DESOXIMETASONE [Concomitant]
     Active Substance: DESOXIMETASONE
  174. DESOXIMETASONE [Concomitant]
     Active Substance: DESOXIMETASONE
     Route: 003
  175. DESOXIMETASONE [Concomitant]
     Active Substance: DESOXIMETASONE
  176. DESOXIMETASONE [Concomitant]
     Active Substance: DESOXIMETASONE
     Route: 048
  177. DESOXIMETASONE [Concomitant]
     Active Substance: DESOXIMETASONE
     Route: 016
  178. CORTISONE ACETATE [Concomitant]
     Active Substance: CORTISONE ACETATE
     Indication: Rheumatoid arthritis
     Route: 048
  179. CORTISONE ACETATE [Concomitant]
     Active Substance: CORTISONE ACETATE
     Route: 058
  180. CORTISONE ACETATE [Concomitant]
     Active Substance: CORTISONE ACETATE
  181. CORTISONE ACETATE [Concomitant]
     Active Substance: CORTISONE ACETATE
     Route: 003
  182. CORTISONE ACETATE [Concomitant]
     Active Substance: CORTISONE ACETATE
     Route: 048
  183. CORTISONE ACETATE [Concomitant]
     Active Substance: CORTISONE ACETATE
     Route: 058
  184. CORTISONE ACETATE [Concomitant]
     Active Substance: CORTISONE ACETATE
  185. CORTISONE ACETATE [Concomitant]
     Active Substance: CORTISONE ACETATE
     Route: 003
  186. CORTISONE ACETATE [Concomitant]
     Active Substance: CORTISONE ACETATE
  187. COD LIVER OIL [Concomitant]
     Active Substance: COD LIVER OIL
     Indication: Product used for unknown indication
  188. COD LIVER OIL [Concomitant]
     Active Substance: COD LIVER OIL
  189. CIMZIA [Concomitant]
     Active Substance: CERTOLIZUMAB PEGOL
     Indication: Rheumatoid arthritis
     Route: 058
  190. CIMZIA [Concomitant]
     Active Substance: CERTOLIZUMAB PEGOL
     Indication: Psoriasis
     Route: 058
  191. CIMZIA [Concomitant]
     Active Substance: CERTOLIZUMAB PEGOL
     Route: 058
  192. CIMZIA [Concomitant]
     Active Substance: CERTOLIZUMAB PEGOL
     Route: 058
  193. CIMZIA [Concomitant]
     Active Substance: CERTOLIZUMAB PEGOL
     Route: 058
  194. CIMZIA [Concomitant]
     Active Substance: CERTOLIZUMAB PEGOL
     Route: 005
  195. CIMZIA [Concomitant]
     Active Substance: CERTOLIZUMAB PEGOL
     Route: 042
  196. CHOLECALCIFEROL [Concomitant]
     Active Substance: CHOLECALCIFEROL
     Indication: Product used for unknown indication
  197. CHLORHEXIDINE GLUCONATE\ISOPROPYL ALCOHOL [Concomitant]
     Active Substance: CHLORHEXIDINE GLUCONATE\ISOPROPYL ALCOHOL
     Indication: Product used for unknown indication
  198. CHLORHEXIDINE GLUCONATE\ISOPROPYL ALCOHOL [Concomitant]
     Active Substance: CHLORHEXIDINE GLUCONATE\ISOPROPYL ALCOHOL
     Route: 002
  199. CHLORHEXIDINE GLUCONATE\ISOPROPYL ALCOHOL [Concomitant]
     Active Substance: CHLORHEXIDINE GLUCONATE\ISOPROPYL ALCOHOL
     Route: 048
  200. CHLORHEXIDINE GLUCONATE [Concomitant]
     Active Substance: CHLORHEXIDINE GLUCONATE
     Indication: Product used for unknown indication
  201. CHLORHEXIDINE GLUCONATE [Concomitant]
     Active Substance: CHLORHEXIDINE GLUCONATE
     Route: 002
  202. CHLORHEXIDINE GLUCONATE [Concomitant]
     Active Substance: CHLORHEXIDINE GLUCONATE
     Route: 048
  203. CHLORAPREP [Concomitant]
     Active Substance: CHLORHEXIDINE GLUCONATE\ISOPROPYL ALCOHOL
     Indication: Product used for unknown indication
  204. CETRIMIDE\CHLORHEXIDINE [Concomitant]
     Active Substance: CETRIMIDE\CHLORHEXIDINE
     Indication: Product used for unknown indication
     Route: 048
  205. CETRIMIDE\CHLORHEXIDINE [Concomitant]
     Active Substance: CETRIMIDE\CHLORHEXIDINE
     Route: 002
  206. CETRIMIDE\CHLORHEXIDINE [Concomitant]
     Active Substance: CETRIMIDE\CHLORHEXIDINE
  207. CERTOLIZUMAB PEGOL [Concomitant]
     Active Substance: CERTOLIZUMAB PEGOL
     Indication: Rheumatoid arthritis
  208. CERTOLIZUMAB PEGOL [Concomitant]
     Active Substance: CERTOLIZUMAB PEGOL
  209. CELECOXIB [Concomitant]
     Active Substance: CELECOXIB
     Indication: Rheumatoid arthritis
  210. CELECOXIB [Concomitant]
     Active Substance: CELECOXIB
  211. CELECOXIB [Concomitant]
     Active Substance: CELECOXIB
     Route: 048
  212. CELECOXIB [Concomitant]
     Active Substance: CELECOXIB
  213. CELECOXIB [Concomitant]
     Active Substance: CELECOXIB
     Route: 048
  214. CETIRIZINE HYDROCHLORIDE [Concomitant]
     Active Substance: CETIRIZINE HYDROCHLORIDE
     Indication: Rheumatoid arthritis
     Route: 048
  215. CETIRIZINE HYDROCHLORIDE [Concomitant]
     Active Substance: CETIRIZINE HYDROCHLORIDE
     Route: 048
  216. CETIRIZINE HYDROCHLORIDE [Concomitant]
     Active Substance: CETIRIZINE HYDROCHLORIDE
     Route: 048
  217. CETIRIZINE HYDROCHLORIDE [Concomitant]
     Active Substance: CETIRIZINE HYDROCHLORIDE
  218. CETIRIZINE HYDROCHLORIDE [Concomitant]
     Active Substance: CETIRIZINE HYDROCHLORIDE
  219. CETIRIZINE HYDROCHLORIDE [Concomitant]
     Active Substance: CETIRIZINE HYDROCHLORIDE
  220. CELEBREX [Concomitant]
     Active Substance: CELECOXIB
     Indication: Product used for unknown indication
     Dosage: 1 EVERY 1 DAYS
  221. CELEBREX [Concomitant]
     Active Substance: CELECOXIB
  222. CELEBREX [Concomitant]
     Active Substance: CELECOXIB
  223. CALCIUM GLUBIONATE [Concomitant]
     Active Substance: CALCIUM GLUBIONATE
     Indication: Product used for unknown indication
  224. CALCIUM CARBONATE\MAGNESIUM CARBONATE\MAGNESIUM TRISILICATE [Concomitant]
     Active Substance: CALCIUM CARBONATE\MAGNESIUM CARBONATE\MAGNESIUM TRISILICATE
     Indication: Product used for unknown indication
  225. CALCIUM CARBONATE [Concomitant]
     Active Substance: CALCIUM CARBONATE
     Indication: Product used for unknown indication
  226. ARAVA [Concomitant]
     Active Substance: LEFLUNOMIDE
     Indication: Rheumatoid arthritis
     Dosage: 1 EVERY 1 DAYS
     Route: 048
  227. ARAVA [Concomitant]
     Active Substance: LEFLUNOMIDE
     Dosage: 1 EVERY 1 DAYS
  228. ARAVA [Concomitant]
     Active Substance: LEFLUNOMIDE
     Dosage: 1 EVERY 1 DAYS
     Route: 048
  229. ARAVA [Concomitant]
     Active Substance: LEFLUNOMIDE
     Dosage: 1 EVERY 1 DAYS
  230. ARAVA [Concomitant]
     Active Substance: LEFLUNOMIDE
     Dosage: 1 EVERY 1 DAYS
  231. ARAVA [Concomitant]
     Active Substance: LEFLUNOMIDE
     Dosage: 1 EVERY 1 DAYS
  232. ARAVA [Concomitant]
     Active Substance: LEFLUNOMIDE
     Dosage: 1 EVERY 1 DAYS
  233. APREMILAST [Concomitant]
     Active Substance: APREMILAST
     Indication: Product used for unknown indication
     Route: 042
  234. APREMILAST [Concomitant]
     Active Substance: APREMILAST
     Route: 042
  235. APREMILAST [Concomitant]
     Active Substance: APREMILAST
  236. PREDNISONE [Concomitant]
     Active Substance: PREDNISONE
     Indication: Rheumatoid arthritis
     Route: 048
  237. PREDNISONE [Concomitant]
     Active Substance: PREDNISONE
     Route: 048
  238. PREDNISONE [Concomitant]
     Active Substance: PREDNISONE
  239. PREDNISONE [Concomitant]
     Active Substance: PREDNISONE
  240. PREDNISONE [Concomitant]
     Active Substance: PREDNISONE
     Route: 048
  241. PREDNISONE [Concomitant]
     Active Substance: PREDNISONE
     Route: 048
  242. PREDNISONE [Concomitant]
     Active Substance: PREDNISONE
  243. ALENDRONATE SODIUM [Concomitant]
     Active Substance: ALENDRONATE SODIUM
     Indication: Rheumatoid arthritis
  244. ADALIMUMAB [Concomitant]
     Active Substance: ADALIMUMAB
     Indication: Psoriatic arthropathy
     Route: 048
  245. ADALIMUMAB [Concomitant]
     Active Substance: ADALIMUMAB
     Route: 048
  246. ADALIMUMAB [Concomitant]
     Active Substance: ADALIMUMAB
     Route: 058
  247. ACTEMRA [Concomitant]
     Active Substance: TOCILIZUMAB
     Indication: Rheumatoid arthritis
     Route: 042
  248. ACTEMRA [Concomitant]
     Active Substance: TOCILIZUMAB
     Route: 042
  249. ACTEMRA [Concomitant]
     Active Substance: TOCILIZUMAB
     Route: 042
  250. ACTEMRA [Concomitant]
     Active Substance: TOCILIZUMAB
     Route: 042
  251. ACTEMRA [Concomitant]
     Active Substance: TOCILIZUMAB
     Route: 042
  252. ACTEMRA [Concomitant]
     Active Substance: TOCILIZUMAB
     Route: 042
  253. ACTEMRA [Concomitant]
     Active Substance: TOCILIZUMAB
     Route: 042
  254. ACTEMRA [Concomitant]
     Active Substance: TOCILIZUMAB
     Route: 042
  255. ACTEMRA [Concomitant]
     Active Substance: TOCILIZUMAB
  256. ACTEMRA [Concomitant]
     Active Substance: TOCILIZUMAB
     Route: 042
  257. ACTEMRA [Concomitant]
     Active Substance: TOCILIZUMAB
     Route: 058
  258. ACTEMRA [Concomitant]
     Active Substance: TOCILIZUMAB
     Route: 042
  259. ACTEMRA [Concomitant]
     Active Substance: TOCILIZUMAB
     Route: 042
  260. ACTEMRA [Concomitant]
     Active Substance: TOCILIZUMAB
     Route: 048
  261. ACTEMRA [Concomitant]
     Active Substance: TOCILIZUMAB
     Route: 058
  262. ACTEMRA [Concomitant]
     Active Substance: TOCILIZUMAB
     Route: 042
  263. ACTEMRA [Concomitant]
     Active Substance: TOCILIZUMAB
     Route: 042
  264. ACTEMRA [Concomitant]
     Active Substance: TOCILIZUMAB
     Route: 042
  265. ACTEMRA [Concomitant]
     Active Substance: TOCILIZUMAB
     Route: 042
  266. ACTEMRA [Concomitant]
     Active Substance: TOCILIZUMAB
     Route: 058
  267. ACETAMINOPHEN AND CODEINE [Concomitant]
     Active Substance: ACETAMINOPHEN\CODEINE PHOSPHATE
     Indication: Rheumatoid arthritis
     Dosage: ELIXIR
  268. ACETAMINOPHEN AND CODEINE [Concomitant]
     Active Substance: ACETAMINOPHEN\CODEINE PHOSPHATE
  269. SIMPONI [Concomitant]
     Active Substance: GOLIMUMAB
     Indication: Rheumatoid arthritis
     Route: 058
  270. SIMPONI [Concomitant]
     Active Substance: GOLIMUMAB
     Indication: Psoriatic arthropathy
     Route: 042
  271. SIMPONI [Concomitant]
     Active Substance: GOLIMUMAB
     Route: 052
  272. SIMPONI [Concomitant]
     Active Substance: GOLIMUMAB
     Route: 058
  273. SIMPONI [Concomitant]
     Active Substance: GOLIMUMAB
  274. STELARA [Concomitant]
     Active Substance: USTEKINUMAB
     Indication: Product used for unknown indication
     Route: 058
  275. STELARA [Concomitant]
     Active Substance: USTEKINUMAB
     Route: 042
  276. STELARA [Concomitant]
     Active Substance: USTEKINUMAB
  277. STELARA [Concomitant]
     Active Substance: USTEKINUMAB
     Route: 058
  278. STELARA [Concomitant]
     Active Substance: USTEKINUMAB
     Route: 042
  279. SULFAMETHOXAZOLE [Concomitant]
     Active Substance: SULFAMETHOXAZOLE
     Indication: Product used for unknown indication
  280. SULFAMETHOXAZOLE\TRIMETHOPRIM [Concomitant]
     Active Substance: SULFAMETHOXAZOLE\TRIMETHOPRIM
     Indication: Product used for unknown indication
  281. SULFASALAZINE [Concomitant]
     Active Substance: SULFASALAZINE
     Indication: Rheumatoid arthritis
     Route: 048
  282. SULFASALAZINE [Concomitant]
     Active Substance: SULFASALAZINE
     Route: 048
  283. SULFASALAZINE [Concomitant]
     Active Substance: SULFASALAZINE
     Route: 048
  284. SULFASALAZINE [Concomitant]
     Active Substance: SULFASALAZINE
     Route: 048
  285. SULFASALAZINE [Concomitant]
     Active Substance: SULFASALAZINE
     Route: 048
  286. SULFASALAZINE [Concomitant]
     Active Substance: SULFASALAZINE
     Route: 048
  287. SULFASALAZINE [Concomitant]
     Active Substance: SULFASALAZINE
  288. SULFASALAZINE [Concomitant]
     Active Substance: SULFASALAZINE
     Route: 048
  289. SULFASALAZINE [Concomitant]
     Active Substance: SULFASALAZINE
  290. SULFASALAZINE [Concomitant]
     Active Substance: SULFASALAZINE
  291. SULFASALAZINE [Concomitant]
     Active Substance: SULFASALAZINE
     Route: 048
  292. TOCILIZUMAB [Concomitant]
     Active Substance: TOCILIZUMAB
     Indication: Rheumatoid arthritis
     Route: 058
  293. TOFACITINIB CITRATE [Concomitant]
     Active Substance: TOFACITINIB CITRATE
     Indication: Rheumatoid arthritis
     Route: 048
  294. TOFACITINIB CITRATE [Concomitant]
     Active Substance: TOFACITINIB CITRATE
     Indication: Psoriatic arthropathy
  295. USTEKINUMAB [Concomitant]
     Active Substance: USTEKINUMAB
     Indication: Psoriatic arthropathy
     Route: 058
  296. USTEKINUMAB [Concomitant]
     Active Substance: USTEKINUMAB
  297. VITAMIN C [Concomitant]
     Active Substance: ASCORBIC ACID
     Indication: Product used for unknown indication
     Route: 016
  298. VITAMIN C [Concomitant]
     Active Substance: ASCORBIC ACID
  299. VITAMIN C [Concomitant]
     Active Substance: ASCORBIC ACID
  300. VITAMIN D3 [Concomitant]
     Active Substance: CHOLECALCIFEROL
     Indication: Product used for unknown indication
  301. PREDNISONE [Concomitant]
     Active Substance: PREDNISONE
     Indication: Product used for unknown indication
     Route: 048
  302. XELJANZ [Concomitant]
     Active Substance: TOFACITINIB CITRATE
     Indication: Rheumatoid arthritis
     Route: 048
  303. XELJANZ [Concomitant]
     Active Substance: TOFACITINIB CITRATE
  304. XELJANZ [Concomitant]
     Active Substance: TOFACITINIB CITRATE
     Route: 048
  305. XELJANZ [Concomitant]
     Active Substance: TOFACITINIB CITRATE
     Route: 048
  306. XELJANZ [Concomitant]
     Active Substance: TOFACITINIB CITRATE
     Route: 048
  307. XELJANZ [Concomitant]
     Active Substance: TOFACITINIB CITRATE
  308. ACETAMINOPHEN [Concomitant]
     Active Substance: ACETAMINOPHEN
     Indication: Rheumatoid arthritis
  309. ACETAMINOPHEN [Concomitant]
     Active Substance: ACETAMINOPHEN
     Route: 048
  310. ACETAMINOPHEN [Concomitant]
     Active Substance: ACETAMINOPHEN
     Route: 048
  311. ACETAMINOPHEN [Concomitant]
     Active Substance: ACETAMINOPHEN
     Route: 048
  312. ACETAMINOPHEN [Concomitant]
     Active Substance: ACETAMINOPHEN
     Route: 048
  313. ACETAMINOPHEN [Concomitant]
     Active Substance: ACETAMINOPHEN
     Route: 058
  314. ALENDRONATE SODIUM\CHOLECALCIFEROL [Concomitant]
     Active Substance: ALENDRONATE SODIUM\CHOLECALCIFEROL
     Indication: Rheumatoid arthritis
     Route: 048
  315. AZATHIOPRINE [Concomitant]
     Active Substance: AZATHIOPRINE
     Indication: Rheumatoid arthritis
     Route: 058
  316. TRAMADOL HYDROCHLORIDE [Concomitant]
     Active Substance: TRAMADOL HYDROCHLORIDE
     Indication: Product used for unknown indication
  317. CAFFEINE [Concomitant]
     Active Substance: CAFFEINE
     Indication: Rheumatoid arthritis
  318. CAFFEINE CITRATE [Concomitant]
     Active Substance: CAFFEINE CITRATE
     Indication: Product used for unknown indication
     Route: 048
  319. CALCIUM [Concomitant]
     Active Substance: CALCIUM
     Indication: Product used for unknown indication
  320. CALCIUM LACTATE [Concomitant]
     Active Substance: CALCIUM LACTATE
     Indication: Product used for unknown indication
  321. CETIRIZINE [Concomitant]
     Active Substance: CETIRIZINE HYDROCHLORIDE
     Indication: Rheumatoid arthritis
     Route: 048
  322. CETIRIZINE [Concomitant]
     Active Substance: CETIRIZINE HYDROCHLORIDE
     Route: 016
  323. CETIRIZINE [Concomitant]
     Active Substance: CETIRIZINE HYDROCHLORIDE
  324. CETIRIZINE [Concomitant]
     Active Substance: CETIRIZINE HYDROCHLORIDE
  325. CETIRIZINE [Concomitant]
     Active Substance: CETIRIZINE HYDROCHLORIDE
     Route: 016
  326. CETIRIZINE [Concomitant]
     Active Substance: CETIRIZINE HYDROCHLORIDE
  327. CETIRIZINE [Concomitant]
     Active Substance: CETIRIZINE HYDROCHLORIDE
  328. CHLORHEXIDINE [Concomitant]
     Active Substance: CHLORHEXIDINE
     Indication: Rheumatoid arthritis
     Route: 048
  329. CHLORHEXIDINE [Concomitant]
     Active Substance: CHLORHEXIDINE
     Route: 002
  330. CHLORHEXIDINE [Concomitant]
     Active Substance: CHLORHEXIDINE
  331. CODEINE [Concomitant]
     Active Substance: CODEINE
     Indication: Rheumatoid arthritis
  332. HYDROCORTISONE ACETATE [Concomitant]
     Active Substance: HYDROCORTISONE ACETATE
     Indication: Rheumatoid arthritis
     Route: 048
  333. HYDROCORTISONE ACETATE [Concomitant]
     Active Substance: HYDROCORTISONE ACETATE
     Route: 058
  334. HYDROCORTISONE ACETATE [Concomitant]
     Active Substance: HYDROCORTISONE ACETATE
     Route: 003
  335. DIPHENHYDRAMINE [Concomitant]
     Active Substance: DIPHENHYDRAMINE
     Indication: Product used for unknown indication
  336. ERGOCALCIFEROL [Concomitant]
     Active Substance: ERGOCALCIFEROL
     Indication: Product used for unknown indication
  337. ERYTHROMYCIN [Concomitant]
     Active Substance: ERYTHROMYCIN
     Indication: Product used for unknown indication
  338. FLUOROMETHOLONE [Concomitant]
     Active Substance: FLUOROMETHOLONE
     Indication: Product used for unknown indication
     Route: 047
  339. FOSAPREPITANT [Concomitant]
     Active Substance: FOSAPREPITANT
     Indication: Rheumatoid arthritis
  340. GLUCOSAMINE [Concomitant]
     Active Substance: GLUCOSAMINE
     Indication: Rheumatoid arthritis
     Route: 048
  341. HYALURONIDASE [Concomitant]
     Active Substance: HYALURONIDASE
     Indication: Product used for unknown indication
  342. KEVZARA [Concomitant]
     Active Substance: SARILUMAB
     Indication: Rheumatoid arthritis
     Route: 003
  343. LANSOPRAZOLE [Concomitant]
     Active Substance: LANSOPRAZOLE
     Indication: Rheumatoid arthritis
     Route: 048
  344. CLIOQUINOL\FLUMETHASONE [Concomitant]
     Active Substance: CLIOQUINOL\FLUMETHASONE
     Indication: Product used for unknown indication
  345. LORAZEPAM [Concomitant]
     Active Substance: LORAZEPAM
     Indication: Rheumatoid arthritis
  346. MELOXICAM [Concomitant]
     Active Substance: MELOXICAM
     Indication: Product used for unknown indication
  347. MELOXICAM [Concomitant]
     Active Substance: MELOXICAM
     Indication: Crohn^s disease
  348. MORPHINE [Concomitant]
     Active Substance: MORPHINE
     Indication: Rheumatoid arthritis
     Route: 048
  349. OXYCODONE [Concomitant]
     Active Substance: OXYCODONE
     Indication: Product used for unknown indication
  350. OXYCODONE HYDROCHLORIDE [Concomitant]
     Active Substance: OXYCODONE HYDROCHLORIDE
     Indication: Product used for unknown indication
  351. PANTOPRAZOLE [Concomitant]
     Active Substance: PANTOPRAZOLE
     Indication: Product used for unknown indication
  352. PANTOPRAZOLE SODIUM [Concomitant]
     Active Substance: PANTOPRAZOLE SODIUM
     Indication: Rheumatoid arthritis
     Route: 048
  353. PARA-AMINOSALICYLIC ACID [Concomitant]
     Active Substance: AMINOSALICYLIC ACID
     Indication: Product used for unknown indication
  354. PREVACID [Concomitant]
     Active Substance: LANSOPRAZOLE
     Indication: Product used for unknown indication
  355. PREVACID [Concomitant]
     Active Substance: LANSOPRAZOLE
     Route: 048
  356. QUETIAPINE FUMARATE [Concomitant]
     Active Substance: QUETIAPINE FUMARATE
     Indication: Product used for unknown indication
  357. PANTOPRAZOLE SODIUM [Concomitant]
     Active Substance: PANTOPRAZOLE SODIUM
     Indication: Rheumatoid arthritis
     Route: 048
  358. HYALURONIDASE (HUMAN RECOMBINANT)\RITUXIMAB [Concomitant]
     Active Substance: HYALURONIDASE (HUMAN RECOMBINANT)\RITUXIMAB
     Indication: Rheumatoid arthritis
     Route: 058
  359. QUETIAPINE FUMARATE [Concomitant]
     Active Substance: QUETIAPINE FUMARATE
     Indication: Product used for unknown indication
  360. DIETARY SUPPLEMENT\HERBALS [Concomitant]
     Active Substance: DIETARY SUPPLEMENT\HERBALS
     Indication: Product used for unknown indication
  361. SULFASALAZINE [Concomitant]
     Active Substance: SULFASALAZINE
     Indication: Product used for unknown indication
  362. ALBUTEROL [Concomitant]
     Active Substance: ALBUTEROL
     Indication: Product used for unknown indication
  363. SECUKINUMAB [Concomitant]
     Active Substance: SECUKINUMAB
     Indication: Product used for unknown indication
  364. TOFACITINIB [Concomitant]
     Active Substance: TOFACITINIB
     Indication: Rheumatoid arthritis
  365. TRUXIMA [Concomitant]
     Active Substance: RITUXIMAB-ABBS
     Indication: Rheumatoid arthritis
     Route: 042
  366. TRUXIMA [Concomitant]
     Active Substance: RITUXIMAB-ABBS
     Indication: Abdominal discomfort
  367. TUMS [Concomitant]
     Active Substance: CALCIUM CARBONATE
     Indication: Product used for unknown indication
  368. TYLENOL [Concomitant]
     Active Substance: ACETAMINOPHEN
     Indication: Product used for unknown indication
  369. ZESTRIL [Concomitant]
     Active Substance: LISINOPRIL
     Indication: Rheumatoid arthritis
     Route: 048

REACTIONS (82)
  - Arthritis [Unknown]
  - C-reactive protein [Unknown]
  - Drug tolerance decreased [Unknown]
  - C-reactive protein increased [Unknown]
  - Red blood cell sedimentation rate increased [Unknown]
  - Deep vein thrombosis postoperative [Unknown]
  - Gait inability [Unknown]
  - Joint dislocation [Unknown]
  - Joint stiffness [Unknown]
  - Lower limb fracture [Unknown]
  - Lupus-like syndrome [Unknown]
  - Muscle spasticity [Unknown]
  - Prescribed underdose [Unknown]
  - Respiratory disorder [Unknown]
  - Swollen joint count [Unknown]
  - Swollen joint count increased [Unknown]
  - Tachycardia [Unknown]
  - Therapeutic product effect incomplete [Unknown]
  - Thrombocytopenia [Unknown]
  - Underdose [Unknown]
  - Visual impairment [Unknown]
  - Vomiting [Unknown]
  - Weight fluctuation [Unknown]
  - White blood cell count increased [Unknown]
  - X-ray abnormal [Unknown]
  - Adverse event [Unknown]
  - Hospitalisation [Unknown]
  - Abdominal discomfort [Unknown]
  - Abdominal pain [Unknown]
  - Alopecia [Unknown]
  - Anti-cyclic citrullinated peptide antibody positive [Unknown]
  - Anxiety [Unknown]
  - Arthralgia [Unknown]
  - Arthropathy [Unknown]
  - Autoimmune disorder [Unknown]
  - Blister [Unknown]
  - Confusional state [Unknown]
  - Contusion [Unknown]
  - Discomfort [Unknown]
  - Duodenal ulcer perforation [Unknown]
  - Dyspnoea [Unknown]
  - Fatigue [Unknown]
  - Folliculitis [Unknown]
  - Gastrointestinal disorder [Unknown]
  - Glossodynia [Unknown]
  - Hand deformity [Unknown]
  - Helicobacter infection [Unknown]
  - Hepatic enzyme increased [Unknown]
  - Hypersensitivity [Unknown]
  - Ill-defined disorder [Unknown]
  - Impaired healing [Unknown]
  - Prescribed overdose [Unknown]
  - Product use issue [Unknown]
  - Therapy non-responder [Unknown]
  - Treatment failure [Unknown]
  - Wound [Unknown]
  - Asthma [Unknown]
  - Lower respiratory tract infection [Unknown]
  - Muscle injury [Unknown]
  - Nasopharyngitis [Unknown]
  - Pemphigus [Unknown]
  - Pericarditis [Unknown]
  - Stomatitis [Unknown]
  - Synovitis [Unknown]
  - Infection [Unknown]
  - Infusion related reaction [Unknown]
  - Irritable bowel syndrome [Unknown]
  - Joint swelling [Unknown]
  - Pain [Unknown]
  - Peripheral swelling [Unknown]
  - Pruritus [Unknown]
  - Pyrexia [Unknown]
  - Rash [Unknown]
  - Rheumatoid arthritis [Unknown]
  - Sinusitis [Unknown]
  - Sleep disorder due to general medical condition, insomnia type [Unknown]
  - Swelling [Unknown]
  - Systemic lupus erythematosus [Unknown]
  - Therapeutic product effect decreased [Unknown]
  - Weight increased [Unknown]
  - Drug ineffective [Unknown]
  - Drug intolerance [Unknown]
